FAERS Safety Report 24432478 (Version 2)
Quarter: 2024Q4

REPORT INFORMATION
  Report Type: Report from Study
  Country: US (occurrence: US)
  Receive Date: 20241014
  Receipt Date: 20241015
  Transmission Date: 20250114
  Serious: Yes (Other)
  Sender: ALEXION PHARMACEUTICALS
  Company Number: US-ASTRAZENECA-202410USA000606US

PATIENT

DRUGS (4)
  1. TAGRISSO [Suspect]
     Active Substance: OSIMERTINIB
     Indication: Lung carcinoma cell type unspecified stage I
     Dosage: QD
  2. TAGRISSO [Suspect]
     Active Substance: OSIMERTINIB
     Dosage: QD
  3. TAGRISSO [Suspect]
     Active Substance: OSIMERTINIB
     Dosage: QD
  4. TAGRISSO [Suspect]
     Active Substance: OSIMERTINIB
     Dosage: QD

REACTIONS (5)
  - Cataract [Unknown]
  - Blood test abnormal [Unknown]
  - Liver function test abnormal [Unknown]
  - Vision blurred [Unknown]
  - Photophobia [Unknown]
